FAERS Safety Report 21687772 (Version 1)
Quarter: 2022Q4

REPORT INFORMATION
  Report Type: Spontaneous
  Country: IT (occurrence: IT)
  Receive Date: 20221206
  Receipt Date: 20221206
  Transmission Date: 20230113
  Serious: Yes (Other)
  Sender: FDA-Public Use
  Company Number: IT-BAYER-2022P024471

PATIENT
  Age: 67 Year
  Sex: Male

DRUGS (1)
  1. SORAFENIB [Suspect]
     Active Substance: SORAFENIB
     Indication: Metastatic malignant melanoma

REACTIONS (5)
  - Metastatic malignant melanoma [None]
  - Metastases to liver [None]
  - Metastases to bone [None]
  - Metastases to lymph nodes [None]
  - Off label use [None]

NARRATIVE: CASE EVENT DATE: 20210101
